FAERS Safety Report 4269564-5 (Version None)
Quarter: 2004Q1

REPORT INFORMATION
  Report Type: 
  Country: None (occurrence: None)
  Receive Date: 20040112
  Receipt Date: 20031229
  Transmission Date: 20041129
  Serious: Yes (Hospitalization)
  Sender: FDA-Public Use
  Company Number: 200400209

PATIENT
  Sex: Male

DRUGS (1)
  1. NIZORAL [Suspect]
     Dosage: TOPICAL
     Dates: start: 20020830

REACTIONS (2)
  - PITYRIASIS RUBRA PILARIS [None]
  - PSORIASIS [None]
